FAERS Safety Report 15646874 (Version 2)
Quarter: 2019Q1

REPORT INFORMATION
  Report Type: Spontaneous
  Country: US (occurrence: US)
  Receive Date: 20181122
  Receipt Date: 20190103
  Transmission Date: 20190417
  Serious: No
  Sender: FDA-Public Use
  Company Number: US-ASTRAZENECA-2018SF43113

PATIENT
  Age: 27827 Day
  Sex: Male
  Weight: 109.8 kg

DRUGS (1)
  1. BYDUREON BCISE [Suspect]
     Active Substance: EXENATIDE
     Indication: TYPE 2 DIABETES MELLITUS
     Route: 058
     Dates: start: 201808

REACTIONS (6)
  - Circumstance or information capable of leading to medication error [Unknown]
  - Needle track marks [Unknown]
  - Device leakage [Unknown]
  - Intentional device misuse [Unknown]
  - Device defective [Unknown]
  - Injection site haemorrhage [Unknown]

NARRATIVE: CASE EVENT DATE: 20181029
